FAERS Safety Report 12454519 (Version 3)
Quarter: 2016Q3

REPORT INFORMATION
  Report Type: Report from Study
  Country: PT (occurrence: PT)
  Receive Date: 20160610
  Receipt Date: 20160812
  Transmission Date: 20161109
  Serious: Yes (Hospitalization, Other)
  Sender: FDA-Public Use
  Company Number: PT-BRISTOL-MYERS SQUIBB COMPANY-BMS-2016-044084

PATIENT
  Age: 55 Year
  Sex: Male
  Weight: 70.4 kg

DRUGS (7)
  1. NIVOLUMAB [Suspect]
     Active Substance: NIVOLUMAB
     Dosage: 211 MG, UNK
     Route: 065
     Dates: start: 20160310
  2. NIVOLUMAB [Suspect]
     Active Substance: NIVOLUMAB
     Indication: NON-SMALL CELL LUNG CANCER
     Dosage: 212 MG, UNK
     Route: 065
     Dates: start: 20160211
  3. NEBIVOLOL. [Concomitant]
     Active Substance: NEBIVOLOL
     Indication: PRODUCT USED FOR UNKNOWN INDICATION
     Dosage: 5 MG, UNK
     Route: 048
     Dates: start: 20160407
  4. RIVAROXABAN [Concomitant]
     Active Substance: RIVAROXABAN
     Indication: PRODUCT USED FOR UNKNOWN INDICATION
     Dosage: 20 MG, UNK
     Route: 048
     Dates: start: 20160414
  5. NIVOLUMAB [Suspect]
     Active Substance: NIVOLUMAB
     Dosage: 214 MG, UNK
     Route: 065
     Dates: start: 20160225
  6. NIVOLUMAB [Suspect]
     Active Substance: NIVOLUMAB
     Dosage: 207 MG, UNK
     Route: 065
     Dates: start: 20160504
  7. NIVOLUMAB [Suspect]
     Active Substance: NIVOLUMAB
     Dosage: 208 MG, UNK
     Route: 065
     Dates: start: 20160324

REACTIONS (1)
  - Atrial fibrillation [Recovered/Resolved]

NARRATIVE: CASE EVENT DATE: 20160531
